FAERS Safety Report 11624921 (Version 1)
Quarter: 2015Q4

REPORT INFORMATION
  Report Type: Spontaneous
  Country: FR (occurrence: FR)
  Receive Date: 20151013
  Receipt Date: 20151013
  Transmission Date: 20160304
  Serious: Yes (Hospitalization)
  Sender: FDA-Public Use
  Company Number: FR-009507513-1510FRA004538

PATIENT
  Age: 63 Year
  Sex: Male

DRUGS (7)
  1. POLARAMINE [Suspect]
     Active Substance: DEXCHLORPHENIRAMINE MALEATE
     Indication: PREMEDICATION
     Dosage: DAILY DOSE: 1 DF, GD, STRENGTH: 5 MG/1ML
     Route: 042
     Dates: start: 20150811, end: 20150811
  2. DOXORUBICIN [Suspect]
     Active Substance: DOXORUBICIN
     Indication: HODGKIN^S DISEASE
     Dosage: DAILY DOSE: 50 MG, QD
     Route: 041
     Dates: start: 20150811, end: 20150811
  3. BLEOMYCIN [Suspect]
     Active Substance: BLEOMYCIN SULFATE
     Indication: HODGKIN^S DISEASE
     Dosage: DAILY DOSE: 20 MG, QD
     Route: 041
     Dates: start: 20150811, end: 20150811
  4. METHYLPREDNISOLONE SODIUM SUCCINATE. [Suspect]
     Active Substance: METHYLPREDNISOLONE SODIUM SUCCINATE
     Indication: PREMEDICATION
     Dosage: DAILY DOSE: 1 DF, QD
     Route: 041
     Dates: start: 20150811, end: 20150811
  5. DACARBAZINE. [Suspect]
     Active Substance: DACARBAZINE
     Indication: HODGKIN^S DISEASE
     Dosage: DAILY DOSE: 740 MG, QD
     Route: 041
     Dates: start: 20150811, end: 20150811
  6. VELBE [Suspect]
     Active Substance: VINBLASTINE SULFATE
     Indication: HODGKIN^S DISEASE
     Dosage: DAILY DOSE: 12 MG, QD
     Route: 041
     Dates: start: 20150811, end: 20150811
  7. ZOPHREN (ONDANSETRON HYDROCHLORIDE) [Suspect]
     Active Substance: ONDANSETRON HYDROCHLORIDE
     Indication: PREMEDICATION
     Dosage: DAILY DOSE: 8 MG, QD, STRENGTH: 2 MG/ML
     Route: 042
     Dates: start: 20150811, end: 20150811

REACTIONS (4)
  - Pericardial effusion [Unknown]
  - Cholestasis [Not Recovered/Not Resolved]
  - Pleural effusion [Unknown]
  - Transaminases increased [Recovered/Resolved]

NARRATIVE: CASE EVENT DATE: 20150811
